FAERS Safety Report 15400037 (Version 8)
Quarter: 2020Q2

REPORT INFORMATION
  Report Type: Report from Study
  Country: US (occurrence: US)
  Receive Date: 20180919
  Receipt Date: 20200618
  Transmission Date: 20200713
  Serious: Yes (Life-Threatening, Hospitalization, Other)
  Sender: FDA-Public Use
  Company Number: US-ACADIA PHARMACEUTICALS INC.-ACA-2018-010241

PATIENT
  Age: 74 Year
  Sex: Male
  Weight: 91 kg

DRUGS (38)
  1. LOVENOX [Concomitant]
     Active Substance: ENOXAPARIN SODIUM
     Indication: PRODUCT USED FOR UNKNOWN INDICATION
  2. NUPLAZID [Suspect]
     Active Substance: PIMAVANSERIN TARTRATE
     Indication: DELUSION
     Dosage: 34 MG, QD AT NIGHT
     Route: 048
     Dates: start: 20180904, end: 20180912
  3. NUPLAZID [Suspect]
     Active Substance: PIMAVANSERIN TARTRATE
     Dosage: CONTINUED WITH DOSE CHANGE
     Route: 048
  4. MITO [Concomitant]
     Indication: PRODUCT USED FOR UNKNOWN INDICATION
  5. PROLIA [Concomitant]
     Active Substance: DENOSUMAB
     Indication: OSTEOPOROSIS
  6. PROBIOTIC [BIFIDOBACTERIUM LACTIS] [Concomitant]
     Active Substance: BIFIDOBACTERIUM ANIMALIS LACTIS
     Indication: SUPPLEMENTATION THERAPY
  7. SODIUM BICARBONATE. [Concomitant]
     Active Substance: SODIUM BICARBONATE
     Indication: PRODUCT USED FOR UNKNOWN INDICATION
     Route: 048
  8. MSM [Concomitant]
     Active Substance: DIMETHYL SULFONE
     Indication: PRODUCT USED FOR UNKNOWN INDICATION
  9. D-MANNOSE [Concomitant]
     Indication: PRODUCT USED FOR UNKNOWN INDICATION
  10. PS [Concomitant]
     Active Substance: MENTHOL
     Indication: PRODUCT USED FOR UNKNOWN INDICATION
     Dosage: 100
  11. ZINC GLUCONATE [Concomitant]
     Active Substance: ZINC GLUCONATE
     Indication: PRODUCT USED FOR UNKNOWN INDICATION
  12. BIOTIN [Concomitant]
     Active Substance: BIOTIN
     Indication: PRODUCT USED FOR UNKNOWN INDICATION
  13. VITAMIN B12 [Concomitant]
     Active Substance: CYANOCOBALAMIN
     Indication: PRODUCT USED FOR UNKNOWN INDICATION
     Route: 065
  14. IPRATROPIUM BROMIDE. [Concomitant]
     Active Substance: IPRATROPIUM BROMIDE
     Indication: PRODUCT USED FOR UNKNOWN INDICATION
  15. CLINDAMYCIN. [Concomitant]
     Active Substance: CLINDAMYCIN
     Indication: MILIARIA
  16. FINASTERIDE. [Concomitant]
     Active Substance: FINASTERIDE
     Indication: BENIGN PROSTATIC HYPERPLASIA
  17. MELATONIN [Concomitant]
     Active Substance: MELATONIN
     Indication: INSOMNIA
  18. ZEOLITE [Concomitant]
     Indication: PRODUCT USED FOR UNKNOWN INDICATION
  19. VITAMIN E [Concomitant]
     Active Substance: .ALPHA.-TOCOPHEROL
     Indication: PRODUCT USED FOR UNKNOWN INDICATION
  20. DOPAMINE [Concomitant]
     Active Substance: DOPAMINE HYDROCHLORIDE
     Indication: PRODUCT USED FOR UNKNOWN INDICATION
  21. VITAMIN D [Concomitant]
     Active Substance: VITAMIN D NOS
     Indication: PRODUCT USED FOR UNKNOWN INDICATION
     Route: 065
  22. TRULANCE [Concomitant]
     Active Substance: PLECANATIDE
     Indication: CONSTIPATION
  23. SEROQUEL [Concomitant]
     Active Substance: QUETIAPINE FUMARATE
     Indication: SLEEP DISORDER
  24. DUOPA [Suspect]
     Active Substance: CARBIDOPA\LEVODOPA
     Indication: PARKINSON^S DISEASE
     Dosage: 21 1/2 HRS PER DAY
     Dates: start: 20180320, end: 202005
  25. COD LIVER OIL [Concomitant]
     Active Substance: COD LIVER OIL
     Indication: PRODUCT USED FOR UNKNOWN INDICATION
  26. GLUTATHIONE [Concomitant]
     Active Substance: GLUTATHIONE
     Indication: PRODUCT USED FOR UNKNOWN INDICATION
  27. PYRIDOSTIGMINE BROMIDE. [Concomitant]
     Active Substance: PYRIDOSTIGMINE BROMIDE
     Indication: PRODUCT USED FOR UNKNOWN INDICATION
  28. ALBUTEROL. [Concomitant]
     Active Substance: ALBUTEROL
     Indication: PRODUCT USED FOR UNKNOWN INDICATION
  29. ANDROGEL [Concomitant]
     Active Substance: TESTOSTERONE
     Indication: SKIN DISORDER
  30. 5 HTP [OXITRIPTAN] [Concomitant]
     Active Substance: OXITRIPTAN
     Indication: PRODUCT USED FOR UNKNOWN INDICATION
  31. MULTIVITAMINS [VITAMINS NOS] [Concomitant]
     Active Substance: VITAMINS
     Indication: PRODUCT USED FOR UNKNOWN INDICATION
  32. NUPLAZID [Suspect]
     Active Substance: PIMAVANSERIN TARTRATE
     Indication: HALLUCINATION
     Dosage: UNK
     Route: 065
     Dates: end: 201808
  33. NUPLAZID [Suspect]
     Active Substance: PIMAVANSERIN TARTRATE
     Indication: PARKINSON^S DISEASE PSYCHOSIS
     Dosage: 34 MG, QD
     Route: 048
     Dates: start: 20180913
  34. COCONUT OIL [Concomitant]
     Active Substance: COCONUT OIL
     Indication: PRODUCT USED FOR UNKNOWN INDICATION
  35. ALOE [Concomitant]
     Active Substance: ALOE
     Indication: PRODUCT USED FOR UNKNOWN INDICATION
  36. EXELON [Concomitant]
     Active Substance: RIVASTIGMINE TARTRATE
     Indication: DEMENTIA
  37. SEROQUEL [Concomitant]
     Active Substance: QUETIAPINE FUMARATE
     Indication: PSYCHOTIC DISORDER
  38. SINEMET [Concomitant]
     Active Substance: CARBIDOPA\LEVODOPA
     Indication: PRODUCT USED FOR UNKNOWN INDICATION

REACTIONS (37)
  - Unresponsive to stimuli [Recovered/Resolved]
  - Cognitive disorder [Recovering/Resolving]
  - Hypersomnia [Recovering/Resolving]
  - Skin discolouration [Recovered/Resolved]
  - Choking [Unknown]
  - Diarrhoea [Recovered/Resolved]
  - Feeling cold [Recovered/Resolved]
  - Hallucination [Recovered/Resolved]
  - Cardiac arrest [Recovered/Resolved]
  - Consciousness fluctuating [Recovered/Resolved]
  - Saliva altered [Recovered/Resolved]
  - Nonspecific reaction [Unknown]
  - Stupor [Recovered/Resolved]
  - Decreased activity [Unknown]
  - Lethargy [Not Recovered/Not Resolved]
  - Delirium [Unknown]
  - Dementia [Not Recovered/Not Resolved]
  - Speech disorder [Recovered/Resolved]
  - Productive cough [Recovered/Resolved]
  - Intestinal obstruction [Recovered/Resolved]
  - Sedation [Recovered/Resolved]
  - Abnormal behaviour [Recovered/Resolved]
  - Crying [Unknown]
  - Social avoidant behaviour [Unknown]
  - Abdominal distension [Recovering/Resolving]
  - Mobility decreased [Unknown]
  - Urine output decreased [Recovering/Resolving]
  - Mental status changes [Recovered/Resolved]
  - Confusional state [Recovered/Resolved]
  - Flat affect [Unknown]
  - Cold sweat [Recovered/Resolved]
  - Unresponsive to stimuli [Recovered/Resolved]
  - Psychotic disorder [Recovered/Resolved]
  - Drooling [Unknown]
  - Productive cough [Unknown]
  - Lid sulcus deepened [Recovering/Resolving]
  - Skin disorder [Recovering/Resolving]

NARRATIVE: CASE EVENT DATE: 2018
